FAERS Safety Report 5792361-6 (Version None)
Quarter: 2008Q2

REPORT INFORMATION
  Report Type: 
  Country: None (occurrence: None)
  Receive Date: 20080625
  Receipt Date: 20080507
  Transmission Date: 20081010
  Serious: Yes (Other)
  Sender: FDA-Public Use
  Company Number: US-WYE-H03993708

PATIENT
  Age: 60 Year
  Sex: Female

DRUGS (1)
  1. TORISEL [Suspect]
     Indication: RENAL CELL CARCINOMA
     Dosage: 7 TOTAL DOSES ^PER NORMAL DOSING SCHEDULE^, INTRAVENOUS
     Route: 042
     Dates: start: 20080301, end: 20080507

REACTIONS (1)
  - BLOOD CREATININE INCREASED [None]
